FAERS Safety Report 19019781 (Version 1)
Quarter: 2021Q1

REPORT INFORMATION
  Report Type: Spontaneous
  Country: SE (occurrence: SE)
  Receive Date: 20210316
  Receipt Date: 20210316
  Transmission Date: 20210420
  Serious: Yes (Hospitalization, Other)
  Sender: FDA-Public Use
  Company Number: SE-AMGEN-SWESP2021038910

PATIENT
  Age: 68 Year
  Sex: Male

DRUGS (2)
  1. BEVACIZUMAB. [Suspect]
     Active Substance: BEVACIZUMAB
     Indication: RECTAL CANCER METASTATIC
     Dosage: BEVACIZUMAB X2DOSAGE 445 (UNIT MISSING)
     Route: 042
     Dates: start: 20210119, end: 20210202
  2. FLUOROURACIL. [Concomitant]
     Active Substance: FLUOROURACIL
     Dosage: UNK

REACTIONS (2)
  - Rectal ulcer [Not Recovered/Not Resolved]
  - Tumour ulceration [Not Recovered/Not Resolved]

NARRATIVE: CASE EVENT DATE: 202101
